FAERS Safety Report 5888178-4 (Version None)
Quarter: 2008Q3

REPORT INFORMATION
  Report Type: 
  Country: None (occurrence: None)
  Receive Date: 20080918
  Receipt Date: 20080912
  Transmission Date: 20090109
  Serious: Yes (Other)
  Sender: FDA-Public Use
  Company Number: JP-ASTRAZENECA-2008AP07251

PATIENT
  Sex: Female

DRUGS (1)
  1. SEROQUEL [Suspect]
     Dosage: SEROQUEL PRESCRIBED FOR PATIENT'S SON/DAUGHTER
     Route: 048
     Dates: start: 20080911, end: 20080911

REACTIONS (1)
  - CARDIAC ARREST [None]
